FAERS Safety Report 9916264 (Version 1)
Quarter: 2014Q1

REPORT INFORMATION
  Report Type: Spontaneous
  Country: US (occurrence: None)
  Receive Date: 20140220
  Receipt Date: 20140220
  Transmission Date: 20141002
  Serious: No
  Sender: FDA-Public Use
  Company Number: None

PATIENT
  Age: 38 Year
  Sex: Female
  Weight: 89.81 kg

DRUGS (3)
  1. BIOTIN [Suspect]
     Indication: SKIN DISORDER
     Route: 048
  2. BIOTIN [Suspect]
     Indication: HAIR DISORDER
     Route: 048
  3. ASPIRIN [Suspect]

REACTIONS (2)
  - Intercepted drug administration error [None]
  - Drug dispensing error [None]
